FAERS Safety Report 5187068-2 (Version None)
Quarter: 2006Q4

REPORT INFORMATION
  Report Type: 
  Country: None (occurrence: None)
  Receive Date: 20061214
  Receipt Date: 20061205
  Transmission Date: 20070319
  Serious: Yes (Death, Hospitalization, Other)
  Sender: FDA-Public Use
  Company Number: 2006129519

PATIENT
  Age: 85 Year
  Sex: Female

DRUGS (1)
  1. FRAGMIN [Suspect]
     Indication: DEEP VEIN THROMBOSIS
     Dosage: SUBCUTANEOUS
     Route: 058
     Dates: start: 20060717

REACTIONS (3)
  - ABDOMINAL HAEMATOMA [None]
  - CARDIAC FAILURE [None]
  - RECTAL HAEMORRHAGE [None]
